FAERS Safety Report 25996020 (Version 1)
Quarter: 2025Q4

REPORT INFORMATION
  Report Type: Spontaneous
  Country: CN (occurrence: CN)
  Receive Date: 20251104
  Receipt Date: 20251104
  Transmission Date: 20260117
  Serious: Yes (Other)
  Sender: ARGENX BVBA
  Company Number: CN-ARGENX-2025-ARGX-CN015020

PATIENT

DRUGS (1)
  1. EFGARTIGIMOD ALFA [Suspect]
     Active Substance: EFGARTIGIMOD ALFA
     Indication: Myasthenia gravis
     Dosage: 10 MG/KG, 1/WEEK
     Route: 065

REACTIONS (2)
  - Myasthenia gravis [Recovering/Resolving]
  - Post procedural pneumonia [Recovering/Resolving]
